FAERS Safety Report 5394829-3 (Version None)
Quarter: 2007Q3

REPORT INFORMATION
  Report Type: 
  Country: None (occurrence: None)
  Receive Date: 20070720
  Receipt Date: 20070709
  Transmission Date: 20080115
  Serious: Yes (Other)
  Sender: FDA-Public Use
  Company Number: SPI200700093

PATIENT
  Age: 55 Year
  Sex: Female
  Weight: 126.1 kg

DRUGS (8)
  1. AMITIZA [Suspect]
     Indication: IRRITABLE BOWEL SYNDROME
     Dosage: 24 MCG, PRN, ORAL; 24 MCG, QD; 24 MCG, SINGLE, ORAL
     Route: 048
     Dates: start: 20070101, end: 20070101
  2. AMITIZA [Suspect]
     Indication: IRRITABLE BOWEL SYNDROME
     Dosage: 24 MCG, PRN, ORAL; 24 MCG, QD; 24 MCG, SINGLE, ORAL
     Route: 048
     Dates: start: 20070101, end: 20070101
  3. AMITIZA [Suspect]
     Indication: IRRITABLE BOWEL SYNDROME
     Dosage: 24 MCG, PRN, ORAL; 24 MCG, QD; 24 MCG, SINGLE, ORAL
     Route: 048
     Dates: start: 20070308, end: 20070308
  4. SYNTHROID [Concomitant]
  5. SINGULAIR [Concomitant]
  6. TOPAMAX [Concomitant]
  7. OMEPRAZOLE [Concomitant]
  8. HORMONES NOS [Concomitant]

REACTIONS (7)
  - CHILLS [None]
  - DEAFNESS [None]
  - DEAFNESS UNILATERAL [None]
  - DIARRHOEA [None]
  - LYMPHADENOPATHY [None]
  - MUSCLE SPASMS [None]
  - TRISMUS [None]
